FAERS Safety Report 16264315 (Version 3)
Quarter: 2019Q2

REPORT INFORMATION
  Report Type: Spontaneous
  Country: US (occurrence: US)
  Receive Date: 20190502
  Receipt Date: 20190614
  Transmission Date: 20190711
  Serious: Yes (Other)
  Sender: FDA-Public Use
  Company Number: US-PFIZER INC-2018416468

PATIENT
  Age: 72 Year
  Sex: Female
  Weight: 82 kg

DRUGS (3)
  1. SOLU-CORTEF [Suspect]
     Active Substance: HYDROCORTISONE SODIUM SUCCINATE
     Indication: CELLULITIS
     Dosage: 100 MG INJECTED INTRAMUSCULARLY, UP TO 2 DOSES A DAY AS NEEDED
     Route: 030
  2. SOLU-CORTEF [Suspect]
     Active Substance: HYDROCORTISONE SODIUM SUCCINATE
     Indication: ADDISON^S DISEASE
     Dosage: 100 MG, DAILY
  3. SOLU-CORTEF [Suspect]
     Active Substance: HYDROCORTISONE SODIUM SUCCINATE
     Indication: HYPOPITUITARISM
     Dosage: UNK

REACTIONS (6)
  - Poor quality product administered [Unknown]
  - Dysphonia [Unknown]
  - Cellulitis [Unknown]
  - Sepsis [Not Recovered/Not Resolved]
  - Product quality issue [Unknown]
  - Infection [Unknown]

NARRATIVE: CASE EVENT DATE: 20190423
